FAERS Safety Report 9693306 (Version 1)
Quarter: 2013Q4

REPORT INFORMATION
  Report Type: Report from Study
  Country: US (occurrence: US)
  Receive Date: 20131118
  Receipt Date: 20131118
  Transmission Date: 20140711
  Serious: Yes (Other)
  Sender: FDA-Public Use
  Company Number: US-ROCHE-1303948

PATIENT
  Age: 67 Year
  Sex: 0

DRUGS (1)
  1. RITUXIMAB [Suspect]
     Indication: CHRONIC LYMPHOCYTIC LEUKAEMIA
     Dosage: LABEL STRENGTH: 400 MG/VIAL
     Route: 042
     Dates: start: 20101028, end: 20111108

REACTIONS (1)
  - Myelodysplastic syndrome [Unknown]
